FAERS Safety Report 8953237 (Version 2)
Quarter: 2012Q4

REPORT INFORMATION
  Report Type: 
  Country: DE (occurrence: DE)
  Receive Date: 20121206
  Receipt Date: 20121224
  Transmission Date: 20130627
  Serious: Yes (Death, Life-Threatening, Hospitalization, Other)
  Sender: FDA-Public Use
  Company Number: DE-RANBAXY-2012RR-62652

PATIENT
  Age: 30 Year
  Sex: Male

DRUGS (6)
  1. METFORMIN [Suspect]
     Indication: PRODUCT USED FOR UNKNOWN INDICATION
     Dosage: 2000 mg, qd
     Route: 048
     Dates: start: 20120704, end: 20120920
  2. CLOZAPINE [Suspect]
     Indication: PRODUCT USED FOR UNKNOWN INDICATION
     Dosage: 12.5-250 mg
     Route: 048
     Dates: start: 201204, end: 20120615
  3. CLOZAPINE [Suspect]
     Indication: PRODUCT USED FOR UNKNOWN INDICATION
     Dosage: 300 mg, qd
     Route: 048
     Dates: start: 20120616, end: 20120703
  4. CLOZAPINE [Suspect]
     Indication: PRODUCT USED FOR UNKNOWN INDICATION
     Dosage: 500 mg, qd
     Route: 048
     Dates: start: 20120704, end: 20120920
  5. OLANZAPINE [Concomitant]
     Indication: PRODUCT USED FOR UNKNOWN INDICATION
     Dosage: 20 mg, UNK
     Route: 065
  6. AMISULPRIDE [Concomitant]
     Indication: PRODUCT USED FOR UNKNOWN INDICATION
     Dosage: 600 mg, UNK
     Route: 065

REACTIONS (3)
  - Cardiac arrest [Fatal]
  - Lactic acidosis [Unknown]
  - Renal failure [Unknown]
